FAERS Safety Report 24730011 (Version 2)
Quarter: 2024Q4

REPORT INFORMATION
  Report Type: Report from Study
  Country: US (occurrence: US)
  Receive Date: 20241213
  Receipt Date: 20241217
  Transmission Date: 20250115
  Serious: Yes (Death, Hospitalization)
  Sender: ROCHE
  Company Number: US-ROCHE-10000155193

PATIENT
  Age: 48 Year
  Sex: Male
  Weight: 167.1 kg

DRUGS (19)
  1. POLIVY [Suspect]
     Active Substance: POLATUZUMAB VEDOTIN-PIIQ
     Indication: Follicular lymphoma
     Dosage: INFUSE 301MG INTRAVENOUSLY EVERY 21 DAY(S)
     Route: 042
  2. POLIVY [Suspect]
     Active Substance: POLATUZUMAB VEDOTIN-PIIQ
     Dosage: INFUSE 301MG INTRAVENOUSLY EVERY 21 DAY(S)
     Route: 042
  3. ZOVIRAX [Concomitant]
     Active Substance: ACYCLOVIR
  4. PROVENTIL [Concomitant]
     Active Substance: ALBUTEROL
     Route: 055
  5. ZYLOPRIM [Concomitant]
     Active Substance: ALLOPURINOL
  6. ELIQUIS [Concomitant]
     Active Substance: APIXABAN
  7. BACLOFEN [Concomitant]
     Active Substance: BACLOFEN
  8. DAPSONE [Concomitant]
     Active Substance: DAPSONE
  9. DECADRON [Concomitant]
     Active Substance: DEXAMETHASONE
  10. LASIX [Concomitant]
     Active Substance: FUROSEMIDE
  11. NEURONTIN [Concomitant]
     Active Substance: GABAPENTIN
  12. MAGNESIUM OXIDE [Concomitant]
     Active Substance: MAGNESIUM OXIDE
  13. TOPROL XL [Concomitant]
     Active Substance: METOPROLOL SUCCINATE
  14. PRILOSEC [Concomitant]
     Active Substance: OMEPRAZOLE MAGNESIUM
  15. ROXICODONE [Concomitant]
     Active Substance: OXYCODONE HYDROCHLORIDE
  16. PHENOL [Concomitant]
     Active Substance: PHENOL
  17. POTASSIUM CHLORIDE [Concomitant]
     Active Substance: POTASSIUM CHLORIDE
  18. ALDACTONE [Concomitant]
     Active Substance: SPIRONOLACTONE
  19. VANCOMYCIN [Concomitant]
     Active Substance: VANCOMYCIN

REACTIONS (2)
  - Death [Fatal]
  - Acute kidney injury [Unknown]
